FAERS Safety Report 4845682-5 (Version None)
Quarter: 2005Q4

REPORT INFORMATION
  Report Type: 
  Country: None (occurrence: None)
  Receive Date: 20051206
  Receipt Date: 20051130
  Transmission Date: 20060501
  Serious: Yes (Hospitalization)
  Sender: FDA-Public Use
  Company Number: AU-BOEHRINGER INGELHEIM PHARMACEUTICALS, INC.-2005-BP-20811AU

PATIENT
  Sex: Female
  Weight: 74 kg

DRUGS (4)
  1. MICARDIS HCT [Suspect]
     Indication: ESSENTIAL HYPERTENSION
     Route: 048
     Dates: start: 20050505, end: 20050623
  2. VOLTAREN [Concomitant]
     Indication: ADVERSE EVENT
  3. METOPROLOL [Concomitant]
     Indication: ADVERSE EVENT
  4. COLOXYL WITH SENNA [Concomitant]
     Indication: CONSTIPATION

REACTIONS (5)
  - ARTHRALGIA [None]
  - ATRIAL FIBRILLATION [None]
  - CHONDROCALCINOSIS PYROPHOSPHATE [None]
  - JOINT SWELLING [None]
  - PAIN IN EXTREMITY [None]
